FAERS Safety Report 9221643 (Version 1)
Quarter: 2013Q2

REPORT INFORMATION
  Report Type: Spontaneous
  Country: US (occurrence: US)
  Receive Date: 20130410
  Receipt Date: 20130410
  Transmission Date: 20140414
  Serious: Yes (Other)
  Sender: FDA-Public Use
  Company Number: US-AMGEN-USASP2013021212

PATIENT
  Age: 63 Year
  Sex: Male
  Weight: 99.32 kg

DRUGS (13)
  1. ENBREL [Suspect]
     Indication: PSORIATIC ARTHROPATHY
     Dosage: 50 MG, QWK
     Route: 058
  2. PROCRIT                            /00909301/ [Concomitant]
     Dosage: 10000 UNK, UNK,/ML
  3. COREG [Concomitant]
     Dosage: 12.5 MG, UNK
  4. AMBIEN [Concomitant]
     Dosage: 5 MG, UNK
  5. LASIX                              /00032601/ [Concomitant]
     Dosage: 20 MG, UNK
  6. MELOXICAM [Concomitant]
     Dosage: 7.5 MG, UNK
  7. PREDNISONE [Concomitant]
     Dosage: 5 MG, UNK
  8. LIPITOR [Concomitant]
     Dosage: 10 MG, UNK
  9. ECOTRIN [Concomitant]
     Dosage: 325 MG, UNK
  10. PREVACID [Concomitant]
     Dosage: 30 MG, UNK
  11. CELEXA                             /00582602/ [Concomitant]
     Dosage: 10 MG, UNK
  12. POTASSIUM [Concomitant]
     Dosage: 75 MG, UNK
  13. VITAMIN D /00107901/ [Concomitant]
     Dosage: 1000 UNIT, UNK

REACTIONS (7)
  - Cardiac disorder [Recovered/Resolved]
  - Dehydration [Recovered/Resolved]
  - Nausea [Recovered/Resolved]
  - Diarrhoea [Recovered/Resolved]
  - Hypersensitivity [Recovered/Resolved]
  - Muscle spasms [Recovered/Resolved]
  - Decreased appetite [Unknown]
